FAERS Safety Report 21848032 (Version 1)
Quarter: 2023Q1

REPORT INFORMATION
  Report Type: Spontaneous
  Country: US (occurrence: None)
  Receive Date: 20230110
  Receipt Date: 20230110
  Transmission Date: 20230418
  Serious: No
  Sender: FDA-Public Use
  Company Number: None

PATIENT
  Age: 49 Year
  Sex: Female
  Weight: 72 kg

DRUGS (1)
  1. COSENTYX [Suspect]
     Active Substance: SECUKINUMAB
     Indication: Hidradenitis
     Dosage: OTHER FREQUENCY : EVERY 4 WEEKS;?
     Route: 058

REACTIONS (4)
  - Pneumonia [None]
  - Osteoarthritis [None]
  - Hip arthroplasty [None]
  - Injection site pain [None]

NARRATIVE: CASE EVENT DATE: 20221230
